FAERS Safety Report 10398402 (Version 1)
Quarter: 2014Q1

REPORT INFORMATION
  Report Type: Spontaneous
  Country: US (occurrence: None)
  Receive Date: 20130815
  Receipt Date: 20130815
  Transmission Date: 20141002
  Serious: Yes (Other)
  Sender: FDA-Public Use
  Company Number: ADR-2010-8347

PATIENT
  Sex: Male

DRUGS (2)
  1. LIORESAL INTRATHECAL (BACLOFEN INJECTION) 500 MCG/ML [Suspect]
     Indication: MUSCLE SPASTICITY
  2. LIORESAL INTRATHECAL (BACLOFEN INJECTION) 500 MCG/ML [Suspect]
     Indication: MULTIPLE SCLEROSIS

REACTIONS (7)
  - Muscle spasms [None]
  - Malaise [None]
  - Drug withdrawal syndrome [None]
  - Depression [None]
  - Headache [None]
  - Influenza like illness [None]
  - Musculoskeletal stiffness [None]
